FAERS Safety Report 15488720 (Version 1)
Quarter: 2018Q4

REPORT INFORMATION
  Report Type: Spontaneous
  Country: IT (occurrence: IT)
  Receive Date: 20181011
  Receipt Date: 20181011
  Transmission Date: 20190205
  Serious: Yes (Other)
  Sender: FDA-Public Use
  Company Number: IT-GLAXOSMITHKLINE-IT2018182812

PATIENT
  Age: 51 Year
  Sex: Male

DRUGS (8)
  1. DUOPLAVIN [Suspect]
     Active Substance: ASPIRIN\CLOPIDOGREL
     Indication: ACUTE MYOCARDIAL INFARCTION
     Dosage: 1 DF, UNK
     Route: 048
  2. FENOFIBRATO [Concomitant]
     Active Substance: FENOFIBRATE
     Indication: HYPERCHOLESTEROLAEMIA
     Dosage: 200 MG, UNK
     Route: 048
  3. BISOPROLOL HEMIFUMARATE [Concomitant]
     Active Substance: BISOPROLOL FUMARATE
     Indication: HYPERTENSION
     Dosage: 5 MG, UNK
     Route: 048
  4. ROSUVASTATIN CALCIUM. [Concomitant]
     Active Substance: ROSUVASTATIN CALCIUM
     Indication: HYPERCHOLESTEROLAEMIA
     Dosage: 5 MG, UNK
     Route: 048
  5. PANTOPRAZOLE [Concomitant]
     Active Substance: PANTOPRAZOLE
     Indication: GASTRODUODENAL HAEMORRHAGE
     Dosage: 20 MG, UNK
     Route: 048
  6. ZOFENOPRIL [Concomitant]
     Active Substance: ZOFENOPRIL
     Indication: HYPERTENSION
     Dosage: 7.5 MG, UNK
     Route: 048
  7. DICLOFENAC [Suspect]
     Active Substance: DICLOFENAC
     Indication: BACK PAIN
     Dosage: 1 DF, UNK
     Route: 030
     Dates: start: 20180913, end: 20180919
  8. EZETROL [Concomitant]
     Active Substance: EZETIMIBE
     Indication: HYPERCHOLESTEROLAEMIA
     Dosage: 10 MG, UNK
     Route: 048

REACTIONS (2)
  - Rectal haemorrhage [Recovered/Resolved]
  - Diarrhoea [Recovered/Resolved]

NARRATIVE: CASE EVENT DATE: 20180919
